FAERS Safety Report 8235681-8 (Version None)
Quarter: 2012Q1

REPORT INFORMATION
  Report Type: 
  Country: None (occurrence: None)
  Receive Date: 20120326
  Receipt Date: 20120313
  Transmission Date: 20120608
  Serious: Yes (Other)
  Sender: FDA-Public Use
  Company Number: PHHY2011AR07009

PATIENT
  Age: 40 Year
  Sex: Male

DRUGS (5)
  1. THIORIDAZINE HCL [Suspect]
     Indication: TUBERCULOSIS
     Dosage: 25 MG, QD
  2. LINEZOLID [Suspect]
     Indication: TUBERCULOSIS
     Dosage: 600 MG, BID
  3. LINEZOLID [Suspect]
     Dosage: 600 MG, QD
  4. MOXIFLOXACIN [Suspect]
     Indication: TUBERCULOSIS
  5. THIORIDAZINE HCL [Suspect]
     Dosage: 200 MG, QD

REACTIONS (2)
  - TRANSAMINASES INCREASED [None]
  - ANAEMIA [None]
